FAERS Safety Report 8922631 (Version 1)
Quarter: 2012Q4

REPORT INFORMATION
  Report Type: Spontaneous
  Country: US (occurrence: None)
  Receive Date: 20121115
  Receipt Date: 20121115
  Transmission Date: 20130627
  Serious: Yes (Other)
  Sender: FDA-Public Use
  Company Number: 001395311A

PATIENT
  Sex: Female

DRUGS (6)
  1. PROACTIV RENEWING CLEANSER [Suspect]
     Indication: ACNE
     Dosage: dermal
     Dates: start: 20121012, end: 20121015
  2. PROACTIV REPAIRING TREATMENT [Suspect]
     Indication: ACNE
     Dosage: dermal
     Dates: start: 20121012, end: 20121015
  3. OIL-FREE DAILY HYDRATION SPF 15 [Suspect]
     Indication: ACNE
     Dates: start: 20121012, end: 20121015
  4. REFINING MASK [Suspect]
     Indication: ACNE
     Dates: start: 20121012, end: 20121015
  5. MAX AIR INHALER [Concomitant]
  6. ALEVE [Concomitant]

REACTIONS (1)
  - Swelling face [None]
